FAERS Safety Report 6973579-3 (Version None)
Quarter: 2010Q3

REPORT INFORMATION
  Report Type: 
  Country: None (occurrence: None)
  Receive Date: 20100907
  Receipt Date: 20100824
  Transmission Date: 20110219
  Serious: Yes (Other)
  Sender: FDA-Public Use
  Company Number: AUR-APL-2010-02116

PATIENT
  Age: 51 Year
  Sex: Female

DRUGS (4)
  1. TOPIRAMATE [Suspect]
     Dosage: 25MG, OD, ORAL
     Route: 048
     Dates: start: 20100501
  2. TOPIRAMATE [Suspect]
     Dosage: 25MG, BID, ORAL
     Route: 048
     Dates: start: 20100622, end: 20100709
  3. DOXYCYCLINE [Concomitant]
  4. SUMATRIPTAN SUCCINATE [Concomitant]

REACTIONS (1)
  - SUICIDAL IDEATION [None]
